FAERS Safety Report 7048245-9 (Version None)
Quarter: 2010Q4

REPORT INFORMATION
  Report Type: 
  Country: None (occurrence: None)
  Receive Date: 20101015
  Receipt Date: 20101007
  Transmission Date: 20110411
  Serious: Yes (Other)
  Sender: FDA-Public Use
  Company Number: DK-ABBOTT-10P-044-0678115-00

PATIENT
  Sex: Male

DRUGS (1)
  1. HUMIRA [Suspect]
     Indication: ANKYLOSING SPONDYLITIS
     Dates: end: 20100501

REACTIONS (5)
  - ADRENOLEUKODYSTROPHY [None]
  - BACK PAIN [None]
  - GAIT DISTURBANCE [None]
  - LEUKODYSTROPHY [None]
  - SPASTIC PARALYSIS [None]
